FAERS Safety Report 23989234 (Version 1)
Quarter: 2024Q2

REPORT INFORMATION
  Report Type: Spontaneous
  Country: GB (occurrence: GB)
  Receive Date: 20240619
  Receipt Date: 20240619
  Transmission Date: 20240716
  Serious: Yes (Hospitalization, Disabling, Other)
  Sender: FDA-Public Use
  Company Number: None

PATIENT
  Age: 48 Year
  Sex: Female

DRUGS (1)
  1. ATORVASTATIN [Suspect]
     Active Substance: ATORVASTATIN
     Indication: Adverse drug reaction
     Dosage: 20MG DAILY
     Dates: start: 20200110, end: 20240604

REACTIONS (1)
  - Pancreatitis chronic [Recovered/Resolved with Sequelae]

NARRATIVE: CASE EVENT DATE: 20200505
